FAERS Safety Report 19922158 (Version 1)
Quarter: 2021Q4

REPORT INFORMATION
  Report Type: Spontaneous
  Country: FR (occurrence: FR)
  Receive Date: 20211006
  Receipt Date: 20211006
  Transmission Date: 20220303
  Serious: Yes (Other)
  Sender: FDA-Public Use
  Company Number: FR-NOVARTISPH-NVSC2021FR223537

PATIENT
  Age: 64 Year
  Sex: Male

DRUGS (3)
  1. PREDNISOLONE [Suspect]
     Active Substance: PREDNISOLONE
     Indication: Non-small cell lung cancer metastatic
     Dosage: 20 MG, QD
     Route: 065
     Dates: start: 20181220
  2. PREDNISOLONE [Suspect]
     Active Substance: PREDNISOLONE
     Dosage: 80 MG, QD (INCREASED)
     Route: 065
  3. PEMBROLIZUMAB [Suspect]
     Active Substance: PEMBROLIZUMAB
     Indication: Non-small cell lung cancer metastatic
     Dosage: 200 MG, Q3W
     Route: 042
     Dates: start: 201712

REACTIONS (3)
  - Non-small cell lung cancer metastatic [Unknown]
  - Malignant neoplasm progression [Unknown]
  - Product use in unapproved indication [Unknown]
